FAERS Safety Report 7482730-0 (Version None)
Quarter: 2011Q2

REPORT INFORMATION
  Report Type: 
  Country: None (occurrence: None)
  Receive Date: 20110516
  Receipt Date: 20110510
  Transmission Date: 20111010
  Serious: Yes (Hospitalization, Other)
  Sender: FDA-Public Use
  Company Number: JP-EISAI INC-E2090-01501-SPO-JP

PATIENT
  Sex: Female

DRUGS (12)
  1. ERIL [Concomitant]
     Dates: start: 20100409, end: 20100409
  2. EPADEL S [Concomitant]
     Indication: MYOCARDIAL INFARCTION
     Route: 048
     Dates: start: 20100409, end: 20100422
  3. ATHROMBONE [Concomitant]
     Dates: start: 20100410, end: 20100420
  4. RADICUT [Concomitant]
     Dates: start: 20100420, end: 20100423
  5. PLETAL [Concomitant]
     Indication: MYOCARDIAL INFARCTION
     Dates: start: 20100409, end: 20100420
  6. VOLTAREN [Concomitant]
     Indication: HEADACHE
     Dosage: UNKNOWN
     Route: 054
     Dates: start: 20100414
  7. ALEVIATIN [Concomitant]
     Indication: EPILEPSY
     Route: 048
     Dates: start: 20100408, end: 20100409
  8. ZONISAMIDE [Suspect]
     Route: 048
     Dates: start: 20100409, end: 20100428
  9. RADICUT [Concomitant]
     Indication: CEREBRAL INFARCTION
     Dates: start: 20100419, end: 20100419
  10. LOXONIN [Suspect]
     Dosage: UNKNOWN
     Route: 048
     Dates: start: 20100410, end: 20100428
  11. ERIL [Concomitant]
     Dates: start: 20100410, end: 20100420
  12. LIPITOR [Concomitant]
     Route: 048
     Dates: start: 20100409, end: 20100422

REACTIONS (3)
  - HEPATIC FUNCTION ABNORMAL [None]
  - DRUG ERUPTION [None]
  - PYREXIA [None]
